FAERS Safety Report 4400681-2 (Version None)
Quarter: 2004Q3

REPORT INFORMATION
  Report Type: 
  Country: None (occurrence: None)
  Receive Date: 20040715
  Receipt Date: 20040715
  Transmission Date: 20050211
  Serious: Yes (Other)
  Sender: FDA-Public Use
  Company Number: None

PATIENT

DRUGS (2)
  1. DILTIAZEM HCL [Suspect]
     Indication: ATRIAL FIBRILLATION
     Dosage: 240 MG ORALLY PER DAY ( SINGLE DOSE)
     Route: 048
     Dates: start: 20040709
  2. DILTIAZEM HCL [Suspect]
     Indication: HYPERTENSION
     Dosage: 240 MG ORALLY PER DAY ( SINGLE DOSE)
     Route: 048
     Dates: start: 20040709

REACTIONS (3)
  - HEADACHE [None]
  - NAUSEA [None]
  - PHARMACEUTICAL PRODUCT COMPLAINT [None]
